FAERS Safety Report 5766336-7 (Version None)
Quarter: 2008Q2

REPORT INFORMATION
  Report Type: 
  Country: None (occurrence: None)
  Receive Date: 20080605
  Receipt Date: 20080521
  Transmission Date: 20081010
  Serious: Yes (Hospitalization)
  Sender: FDA-Public Use
  Company Number: MK-6035693

PATIENT
  Age: 36 Year
  Sex: Male

DRUGS (4)
  1. WARFARIN SODIUM [Suspect]
     Indication: PULMONARY EMBOLISM
     Dosage: 10 MG; ORAL
     Route: 048
     Dates: start: 20070422
  2. TRAMADOL HCL [Suspect]
     Indication: PAIN
     Dosage: 50 MG; TWICE A DAY; ORAL
     Route: 048
     Dates: start: 20070422, end: 20070423
  3. CLEXANE (CON.) [Concomitant]
  4. PARACETAMOL (CON.) [Concomitant]

REACTIONS (1)
  - RASH MACULAR [None]
